FAERS Safety Report 4522053-2 (Version None)
Quarter: 2004Q4

REPORT INFORMATION
  Report Type: 
  Country: None (occurrence: None)
  Receive Date: 20041209
  Receipt Date: 20041202
  Transmission Date: 20050328
  Serious: Yes (Death, Hospitalization)
  Sender: FDA-Public Use
  Company Number: US-MERCK-0412USA00477

PATIENT
  Age: 80 Year
  Sex: Male

DRUGS (4)
  1. DECADRON [Suspect]
     Indication: CHEMOTHERAPY
     Route: 048
     Dates: start: 20040101, end: 20040101
  2. DOCETAXEL [Suspect]
     Indication: CHEMOTHERAPY
     Route: 065
     Dates: start: 20040101, end: 20040101
  3. MORPHINE SULFATE [Concomitant]
     Route: 065
  4. NAPROXEN [Concomitant]
     Route: 065

REACTIONS (6)
  - BLOOD CREATININE INCREASED [None]
  - BLOOD LACTATE DEHYDROGENASE INCREASED [None]
  - BLOOD POTASSIUM INCREASED [None]
  - PROSTATE CANCER [None]
  - RENAL FAILURE [None]
  - TUMOUR LYSIS SYNDROME [None]
